FAERS Safety Report 10305304 (Version 1)
Quarter: 2014Q3

REPORT INFORMATION
  Report Type: Spontaneous
  Country: US (occurrence: None)
  Receive Date: 20140711
  Receipt Date: 20140711
  Transmission Date: 20150326
  Serious: No
  Sender: FDA-Public Use
  Company Number: None

PATIENT
  Age: 54 Year
  Sex: Male
  Weight: 86.18 kg

DRUGS (1)
  1. METFORMIN [Suspect]
     Active Substance: METFORMIN HYDROCHLORIDE
     Indication: GLUCOSE TOLERANCE IMPAIRED
     Dosage: TAKEN BY MOUTH
     Route: 048
     Dates: start: 20140701, end: 20140710

REACTIONS (7)
  - Pain in extremity [None]
  - Fatigue [None]
  - Musculoskeletal pain [None]
  - Mobility decreased [None]
  - Diarrhoea [None]
  - Hypertension [None]
  - Headache [None]

NARRATIVE: CASE EVENT DATE: 20140708
